FAERS Safety Report 17881334 (Version 1)
Quarter: 2020Q2

REPORT INFORMATION
  Report Type: Spontaneous
  Country: DE (occurrence: DE)
  Receive Date: 20200610
  Receipt Date: 20200610
  Transmission Date: 20200714
  Serious: Yes (Other)
  Sender: FDA-Public Use
  Company Number: DE-ASTRAZENECA-2020SE73363

PATIENT
  Sex: Female

DRUGS (1)
  1. FASENRA [Suspect]
     Active Substance: BENRALIZUMAB
     Indication: ASTHMA
     Route: 058
     Dates: start: 201908

REACTIONS (5)
  - Depressed mood [Unknown]
  - Nasopharyngitis [Unknown]
  - Asthma [Unknown]
  - Fatigue [Unknown]
  - Haemorrhage [Unknown]
